FAERS Safety Report 16667328 (Version 3)
Quarter: 2019Q3

REPORT INFORMATION
  Report Type: Spontaneous
  Country: FR (occurrence: FR)
  Receive Date: 20190805
  Receipt Date: 20190829
  Transmission Date: 20191004
  Serious: Yes (Hospitalization)
  Sender: FDA-Public Use
  Company Number: FR-PFIZER INC-2019325779

PATIENT
  Age: 63 Year
  Sex: Male
  Weight: 80 kg

DRUGS (10)
  1. DALACINE [Suspect]
     Active Substance: CLINDAMYCIN
     Indication: RASH MACULAR
     Dosage: 300 MG, 1X/DAY
     Route: 048
     Dates: start: 20190620, end: 201908
  2. RIFADINE [RIFAMPICIN] [Concomitant]
     Active Substance: RIFAMPIN
     Indication: ACNE
     Dosage: 300 MG, 1X/DAY
     Route: 048
     Dates: start: 20190620
  3. ESOMEPRAZOLE. [Concomitant]
     Active Substance: ESOMEPRAZOLE MAGNESIUM
     Indication: GASTRIC PH DECREASED
     Dosage: 40 MG, 1X/DAY
     Route: 048
  4. DULOXETINE. [Concomitant]
     Active Substance: DULOXETINE
     Indication: PAIN
  5. HYDROXYZINE [Concomitant]
     Active Substance: HYDROXYZINE HYDROCHLORIDE
     Indication: SLEEP DISORDER
  6. DULOXETINE. [Concomitant]
     Active Substance: DULOXETINE
     Indication: DEPRESSION
     Dosage: 60 MG, 1X/DAY
     Route: 048
  7. EZETIMIBE. [Concomitant]
     Active Substance: EZETIMIBE
     Indication: LIPID METABOLISM DISORDER
     Dosage: 40 MG, 1X/DAY
     Route: 048
  8. HYDROXYZINE [Concomitant]
     Active Substance: HYDROXYZINE HYDROCHLORIDE
     Indication: ANXIETY
     Dosage: 12.5 MG, DAILY
     Route: 048
  9. ROSUVASTATIN. [Concomitant]
     Active Substance: ROSUVASTATIN
     Indication: LIPID METABOLISM DISORDER
     Dosage: 10 MG, 1X/DAY
     Route: 048
  10. UROREC [Concomitant]
     Active Substance: SILODOSIN
     Indication: BENIGN PROSTATIC HYPERPLASIA
     Dosage: 8 MG, 1X/DAY
     Route: 048

REACTIONS (9)
  - Chest discomfort [Not Recovered/Not Resolved]
  - Nausea [Unknown]
  - Anxiety [Unknown]
  - Product use issue [Unknown]
  - Gastrointestinal disorder [Unknown]
  - Dyspnoea [Not Recovered/Not Resolved]
  - Fatigue [Not Recovered/Not Resolved]
  - Off label use [Unknown]
  - Sensitivity to weather change [Unknown]

NARRATIVE: CASE EVENT DATE: 201906
